FAERS Safety Report 8433815-3 (Version None)
Quarter: 2012Q2

REPORT INFORMATION
  Report Type: 
  Country: None (occurrence: None)
  Receive Date: 20120613
  Receipt Date: 20120607
  Transmission Date: 20120825
  Serious: Yes (Other)
  Sender: FDA-Public Use
  Company Number: US-PFIZER INC-2012106940

PATIENT
  Sex: Female

DRUGS (1)
  1. TAPAZOLE [Suspect]
     Indication: HYPERTHYROIDISM
     Dosage: 10 MG, 1X/DAY
     Route: 048
     Dates: start: 20120401, end: 20120401

REACTIONS (4)
  - GAIT DISTURBANCE [None]
  - MUSCLE INJURY [None]
  - PAIN IN EXTREMITY [None]
  - ARTHRALGIA [None]
